FAERS Safety Report 10907868 (Version 1)
Quarter: 2015Q1

REPORT INFORMATION
  Report Type: Spontaneous
  Country: US (occurrence: US)
  Receive Date: 20150312
  Receipt Date: 20150312
  Transmission Date: 20150721
  Serious: No
  Sender: FDA-Public Use
  Company Number: US-INCYTE CORPORATION-2015IN000002

PATIENT
  Age: 81 Year
  Sex: Female
  Weight: 48.98 kg

DRUGS (13)
  1. BUSPIRONE [Concomitant]
     Active Substance: BUSPIRONE HYDROCHLORIDE
  2. JAKAFI [Suspect]
     Active Substance: RUXOLITINIB
     Indication: MYELOFIBROSIS
     Dosage: 20 MG, BID
     Route: 048
     Dates: start: 201410
  3. TIMOLOL [Concomitant]
     Active Substance: TIMOLOL
  4. BENEFIBER                          /01648102/ [Concomitant]
  5. METOLAZONE. [Concomitant]
     Active Substance: METOLAZONE
  6. GLIMEPIRIDE. [Concomitant]
     Active Substance: GLIMEPIRIDE
  7. RISPERIDONE. [Concomitant]
     Active Substance: RISPERIDONE
  8. RAMIPRIL. [Concomitant]
     Active Substance: RAMIPRIL
  9. LORAZEPAM. [Concomitant]
     Active Substance: LORAZEPAM
  10. KLOR-CON [Concomitant]
     Active Substance: POTASSIUM CHLORIDE
  11. SIMVASTATIN. [Concomitant]
     Active Substance: SIMVASTATIN
  12. ATENOLOL. [Concomitant]
     Active Substance: ATENOLOL
  13. ASPIRIN EC [Concomitant]
     Active Substance: ASPIRIN

REACTIONS (1)
  - Accidental overdose [Recovered/Resolved]

NARRATIVE: CASE EVENT DATE: 20150101
